FAERS Safety Report 6443872-1 (Version None)
Quarter: 2009Q4

REPORT INFORMATION
  Report Type: 
  Country: None (occurrence: None)
  Receive Date: 20091117
  Receipt Date: 20091104
  Transmission Date: 20100525
  Serious: Yes (Other)
  Sender: FDA-Public Use
  Company Number: JP-MERCK-0911USA01531

PATIENT
  Sex: Female

DRUGS (2)
  1. DECADRON [Suspect]
     Route: 048
  2. RITODRINE HYDROCHLORIDE [Concomitant]
     Route: 065

REACTIONS (3)
  - DRUG EXPOSURE DURING PREGNANCY [None]
  - HYDROPS FOETALIS [None]
  - PREMATURE BABY [None]
